FAERS Safety Report 24210482 (Version 1)
Quarter: 2024Q3

REPORT INFORMATION
  Report Type: Spontaneous
  Country: US (occurrence: None)
  Receive Date: 20240813
  Receipt Date: 20240813
  Transmission Date: 20241017
  Serious: No
  Sender: Public
  Company Number: None

PATIENT
  Age: 63 Year
  Sex: Female

DRUGS (1)
  1. SCEMBLIX [Suspect]
     Active Substance: ASCIMINIB HYDROCHLORIDE
     Dosage: 40 MG TID ORAL?
     Route: 048
     Dates: start: 20240726

REACTIONS (5)
  - Peripheral swelling [None]
  - Dizziness [None]
  - Night sweats [None]
  - Malaise [None]
  - Off label use [None]

NARRATIVE: CASE EVENT DATE: 20240812
